FAERS Safety Report 6985369-6 (Version None)
Quarter: 2010Q3

REPORT INFORMATION
  Report Type: 
  Country: None (occurrence: None)
  Receive Date: 20100915
  Receipt Date: 20100816
  Transmission Date: 20110219
  Serious: No
  Sender: FDA-Public Use
  Company Number: US-PFIZER INC-2009271756

PATIENT
  Sex: Female
  Weight: 74.83 kg

DRUGS (4)
  1. CHANTIX [Suspect]
     Indication: SMOKING CESSATION THERAPY
     Dosage: UNK
     Dates: start: 20090917
  2. CHANTIX [Suspect]
     Dosage: 0.5 MG, 1X/DAY
     Route: 048
     Dates: start: 20100401, end: 20100401
  3. XANAX [Concomitant]
     Indication: ANXIETY
     Dosage: UNK
  4. GINGER [Concomitant]
     Dosage: UNK

REACTIONS (6)
  - ABNORMAL DREAMS [None]
  - AGITATION [None]
  - ANXIETY [None]
  - DEPRESSION [None]
  - HEADACHE [None]
  - TINNITUS [None]
